FAERS Safety Report 23755549 (Version 2)
Quarter: 2024Q2

REPORT INFORMATION
  Report Type: Spontaneous
  Country: US (occurrence: US)
  Receive Date: 20240418
  Receipt Date: 20240503
  Transmission Date: 20240716
  Serious: Yes (Other)
  Sender: FDA-Public Use
  Company Number: US-BAXTER-2024BAX017010

PATIENT
  Sex: Female

DRUGS (4)
  1. LIDOCAINE [Suspect]
     Active Substance: LIDOCAINE
     Indication: Foetal exposure during pregnancy
     Route: 064
  2. METOPROLOL TARTRATE [Suspect]
     Active Substance: METOPROLOL TARTRATE
     Indication: Foetal exposure during pregnancy
     Route: 064
  3. SOTALOL [Suspect]
     Active Substance: SOTALOL
     Indication: Foetal exposure during pregnancy
     Route: 064
  4. SOTALOL [Suspect]
     Active Substance: SOTALOL
     Dosage: INCREASE IN THE SOTALOL DOSE
     Route: 064

REACTIONS (2)
  - Foetal heart rate decreased [Unknown]
  - Foetal exposure during pregnancy [Unknown]
